FAERS Safety Report 11775141 (Version 1)
Quarter: 2015Q4

REPORT INFORMATION
  Report Type: Report from Study
  Country: DE (occurrence: DE)
  Receive Date: 20151124
  Receipt Date: 20151124
  Transmission Date: 20160304
  Serious: Yes (Hospitalization)
  Sender: FDA-Public Use
  Company Number: DE-BRISTOL-MYERS SQUIBB COMPANY-BMS-2015-078678

PATIENT
  Age: 65 Year
  Sex: Female
  Weight: 67 kg

DRUGS (3)
  1. KALIUM                             /00031401/ [Concomitant]
     Indication: PRODUCT USED FOR UNKNOWN INDICATION
     Dosage: 1 DF, UNK
     Route: 048
     Dates: start: 201501
  2. CERTICAN [Concomitant]
     Active Substance: EVEROLIMUS
     Indication: PRODUCT USED FOR UNKNOWN INDICATION
     Dosage: 4 MG, UNK
     Route: 048
     Dates: start: 200802
  3. BELATACEPT [Suspect]
     Active Substance: BELATACEPT
     Indication: RENAL TRANSPLANT
     Route: 065

REACTIONS (2)
  - Constipation [Recovered/Resolved]
  - Subileus [Recovered/Resolved]

NARRATIVE: CASE EVENT DATE: 20150401
